FAERS Safety Report 9722567 (Version 1)
Quarter: 2013Q4

REPORT INFORMATION
  Report Type: Spontaneous
  Country: US (occurrence: US)
  Receive Date: 20131202
  Receipt Date: 20131202
  Transmission Date: 20140711
  Serious: Yes (Hospitalization, Other)
  Sender: FDA-Public Use
  Company Number: US-UCBSA-104409

PATIENT
  Sex: Female

DRUGS (10)
  1. VIMPAT [Suspect]
     Indication: EPILEPSY
  2. KEPPRA [Suspect]
     Indication: EPILEPSY
  3. PREDNISONE [Suspect]
     Indication: INFANTILE SPASMS
  4. VIGABATRIN [Suspect]
     Indication: EPILEPSY
  5. CLONAZEPAM [Suspect]
     Indication: EPILEPSY
  6. TOPOMAX [Suspect]
     Indication: CONVULSION
  7. ZONEGRAN [Suspect]
     Indication: EPILEPSY
  8. LAMICTAL [Suspect]
     Indication: EPILEPSY
  9. BANZEL [Suspect]
     Indication: EPILEPSY
  10. ACTH [Suspect]
     Indication: EPILEPSY

REACTIONS (20)
  - Abnormal behaviour [Unknown]
  - Convulsion [Not Recovered/Not Resolved]
  - Psychotic disorder [Unknown]
  - Sepsis [Recovered/Resolved]
  - Hypersomnia [Recovered/Resolved]
  - Walking disability [Unknown]
  - Muscle atrophy [Unknown]
  - Emotional disorder [Unknown]
  - Cognitive disorder [Not Recovered/Not Resolved]
  - Sleep terror [Unknown]
  - Psychomotor skills impaired [Recovering/Resolving]
  - Status epilepticus [Unknown]
  - Asthenia [Not Recovered/Not Resolved]
  - Decreased appetite [Not Recovered/Not Resolved]
  - Weight increased [Unknown]
  - Fall [Unknown]
  - Screaming [Unknown]
  - Crying [Unknown]
  - Sleep disorder [Recovering/Resolving]
  - Drug ineffective [Unknown]
